FAERS Safety Report 13319893 (Version 5)
Quarter: 2017Q2

REPORT INFORMATION
  Report Type: Report from Study
  Country: US (occurrence: US)
  Receive Date: 20170309
  Receipt Date: 20170601
  Transmission Date: 20170830
  Serious: Yes (Hospitalization)
  Sender: FDA-Public Use
  Company Number: US-ROCHE-1901714

PATIENT
  Age: 74 Year
  Sex: Female
  Weight: 38.6 kg

DRUGS (17)
  1. ATEZOLIZUMAB [Suspect]
     Active Substance: ATEZOLIZUMAB
     Indication: NON-SMALL CELL LUNG CANCER STAGE IV
     Dosage: MOST RECENT DOSE OF 1200MG PRIOR TO EVENTS ONSET: 18/JAN/2017
     Route: 042
     Dates: start: 20161206
  2. BEVACIZUMAB [Suspect]
     Active Substance: BEVACIZUMAB
     Indication: NON-SMALL CELL LUNG CANCER STAGE IV
     Dosage: DOSE AS PER PROTOCOL, MOST RECENT DOSE OF 723MG PRIOR TO EVENTS ONSET: 18/JAN/2017
     Route: 042
     Dates: start: 20161206
  3. KEPPRA [Concomitant]
     Active Substance: LEVETIRACETAM
     Indication: ATAXIA
     Route: 065
     Dates: start: 20161019
  4. POTASSIUM CHLORIDE. [Concomitant]
     Active Substance: POTASSIUM CHLORIDE
     Indication: HYPONATRAEMIA
     Route: 065
     Dates: start: 20161019, end: 201611
  5. IMODIUM [Concomitant]
     Active Substance: LOPERAMIDE HYDROCHLORIDE
     Indication: FREQUENT BOWEL MOVEMENTS
     Route: 065
     Dates: start: 20170103
  6. REMERON [Concomitant]
     Active Substance: MIRTAZAPINE
     Indication: DECREASED APPETITE
     Route: 065
     Dates: start: 20170208
  7. POTASSIUM CHLORIDE. [Concomitant]
     Active Substance: POTASSIUM CHLORIDE
     Route: 065
     Dates: start: 20170208
  8. CARBOPLATIN. [Suspect]
     Active Substance: CARBOPLATIN
     Indication: NON-SMALL CELL LUNG CANCER STAGE IV
     Dosage: DOSING PER PROTOCOL: AREA UNDER THE CONCENTRATION CURVE (AUC) 6 ON DAY 1 OF EACH 21-DAY CYCLE FOR 4
     Route: 042
     Dates: start: 20161207
  9. POTASSIUM CHLORIDE. [Concomitant]
     Active Substance: POTASSIUM CHLORIDE
     Indication: HYPOKALAEMIA
     Route: 065
     Dates: start: 20161206
  10. GUAIFENESIN/CODEINE [Concomitant]
     Active Substance: CODEINE PHOSPHATE\GUAIFENESIN
     Indication: COUGH
     Route: 065
     Dates: start: 20170118
  11. PRILOSEC [Concomitant]
     Active Substance: OMEPRAZOLE MAGNESIUM
     Indication: PREMEDICATION
     Route: 065
     Dates: start: 20161207
  12. PACLITAXEL. [Suspect]
     Active Substance: PACLITAXEL
     Indication: NON-SMALL CELL LUNG CANCER STAGE IV
     Dosage: DOSING PER PROTOCOL, DAY 1 OF EACH 21-DAY CYCLE FOR 4 OR 6 CYCLES?MOST RECENT DOSE OF 294MG PRIOR TO
     Route: 042
     Dates: start: 20161207
  13. ASPIRIN. [Concomitant]
     Active Substance: ASPIRIN
     Indication: CARDIOVASCULAR EVENT PROPHYLAXIS
     Dosage: ASPIRIN CHEWABLE TABLET
     Route: 065
  14. MEGACE [Concomitant]
     Active Substance: MEGESTROL ACETATE
     Indication: WEIGHT DECREASED
     Route: 065
     Dates: start: 20170117
  15. NORVASC [Concomitant]
     Active Substance: AMLODIPINE BESYLATE
     Indication: HYPERTENSION
     Route: 065
     Dates: start: 20160825, end: 20170208
  16. HYDRODIURIL [Concomitant]
     Active Substance: HYDROCHLOROTHIAZIDE
     Indication: HYPERTENSION
     Route: 065
     Dates: start: 20160706, end: 20170208
  17. MIRALAX [Concomitant]
     Active Substance: POLYETHYLENE GLYCOL 3350
     Indication: CONSTIPATION
     Route: 065
     Dates: start: 20170214

REACTIONS (5)
  - Cardiac ventricular thrombosis [Recovered/Resolved]
  - Haematoma [Recovered/Resolved]
  - Ejection fraction decreased [Recovered/Resolved]
  - Fall [Unknown]
  - Large intestine perforation [Not Recovered/Not Resolved]

NARRATIVE: CASE EVENT DATE: 20170301
